FAERS Safety Report 21859547 (Version 10)
Quarter: 2024Q3

REPORT INFORMATION
  Report Type: Spontaneous
  Country: US (occurrence: US)
  Receive Date: 20230113
  Receipt Date: 20240701
  Transmission Date: 20241016
  Serious: Yes (Hospitalization, Other)
  Sender: PFIZER
  Company Number: US-PFIZER INC-PV202300006906

PATIENT
  Age: 78 Year
  Sex: Female
  Weight: 61.224 kg

DRUGS (4)
  1. ESTRING [Suspect]
     Active Substance: ESTRADIOL
     Indication: Urinary tract infection
     Dosage: UNK, EVERY 3 MONTHS
     Route: 067
     Dates: start: 202205
  2. ESTRING [Suspect]
     Active Substance: ESTRADIOL
     Indication: Single functional kidney
  3. ESTRADIOL [Concomitant]
     Active Substance: ESTRADIOL
     Indication: Urinary tract infection
     Dosage: APPLIES IT EVERY DAY
     Dates: start: 20240501
  4. CLARITHROMYCIN [Concomitant]
     Active Substance: CLARITHROMYCIN
     Indication: Urinary tract infection
     Dosage: UNK
     Dates: start: 202403

REACTIONS (5)
  - Urosepsis [Unknown]
  - Dementia [Not Recovered/Not Resolved]
  - Arthritis [Unknown]
  - Off label use [Unknown]
  - Drug effective for unapproved indication [Unknown]

NARRATIVE: CASE EVENT DATE: 20220101
